FAERS Safety Report 9142732 (Version 1)
Quarter: 2013Q1

REPORT INFORMATION
  Report Type: Spontaneous
  Country: US (occurrence: US)
  Receive Date: 20130306
  Receipt Date: 20130306
  Transmission Date: 20140127
  Serious: No
  Sender: FDA-Public Use
  Company Number: US-ENDO PHARMACEUTICALS INC.-OPGN20120009

PATIENT
  Sex: Male

DRUGS (2)
  1. OXYMORPHONE HYDROCHLORIDE [Suspect]
     Indication: PRODUCT USED FOR UNKNOWN INDICATION
     Dosage: 10 MG
     Route: 048
  2. OXYMORPHONE HYDROCHLORIDE [Suspect]
     Dosage: 40 MG
     Route: 048

REACTIONS (1)
  - Malaise [Unknown]
